FAERS Safety Report 17730899 (Version 1)
Quarter: 2020Q2

REPORT INFORMATION
  Report Type: Spontaneous
  Country: DE (occurrence: DE)
  Receive Date: 20200430
  Receipt Date: 20200430
  Transmission Date: 20200714
  Serious: Yes (Other)
  Sender: FDA-Public Use
  Company Number: DE-BIOGEN-2020BI00869175

PATIENT
  Age: 41 Year
  Sex: Female
  Weight: 86 kg

DRUGS (1)
  1. TECFIDERA [Suspect]
     Active Substance: DIMETHYL FUMARATE
     Indication: PATERNAL EXPOSURE TIMING UNSPECIFIED
     Route: 064
     Dates: start: 20140203

REACTIONS (3)
  - Labour complication [Recovered/Resolved]
  - Paternal exposure during pregnancy [Recovered/Resolved]
  - Foetal cardiac disorder [Recovered/Resolved]

NARRATIVE: CASE EVENT DATE: 20180807
